FAERS Safety Report 20130406 (Version 1)
Quarter: 2021Q4

REPORT INFORMATION
  Report Type: Spontaneous
  Country: SI (occurrence: SI)
  Receive Date: 20211130
  Receipt Date: 20211130
  Transmission Date: 20220303
  Serious: Yes (Other)
  Sender: FDA-Public Use
  Company Number: SI-PFIZER INC-202101040295

PATIENT
  Age: 69 Year
  Sex: Female

DRUGS (7)
  1. CISPLATIN [Suspect]
     Active Substance: CISPLATIN
     Indication: Lung adenocarcinoma
     Dosage: 160 MILLIGRAM (ONE COURSE)
  2. DEXAMETHASONE [Suspect]
     Active Substance: DEXAMETHASONE
     Indication: Lung adenocarcinoma
     Dosage: ONE COURSE
  3. MANNITOL [Suspect]
     Active Substance: MANNITOL
     Indication: Lung adenocarcinoma
     Dosage: ONE COURSE
  4. ETOPOSIDE [Suspect]
     Active Substance: ETOPOSIDE
     Indication: Lung adenocarcinoma
     Dosage: 500 MILLIGRAM (ONE COURSE)
  5. TROPISETRON [Suspect]
     Active Substance: TROPISETRON
     Indication: Lung adenocarcinoma
     Dosage: ONE COURSE
  6. METHYLPREDNISOLONE [Concomitant]
     Active Substance: METHYLPREDNISOLONE
     Dosage: 16 MILLIGRAM, QOD (ALTERNATE DAY)
  7. METHYLPREDNISOLONE [Concomitant]
     Active Substance: METHYLPREDNISOLONE
     Dosage: 8 MILLIGRAM, QOD (ALTERNATE DAY)

REACTIONS (1)
  - Febrile neutropenia [Recovering/Resolving]
